FAERS Safety Report 5755595-2 (Version None)
Quarter: 2008Q2

REPORT INFORMATION
  Report Type: 
  Country: None (occurrence: None)
  Receive Date: 20080602
  Receipt Date: 20080526
  Transmission Date: 20081010
  Serious: Yes (Hospitalization)
  Sender: FDA-Public Use
  Company Number: JP-MERCK-0805USA04579

PATIENT
  Age: 94 Year
  Sex: Female

DRUGS (4)
  1. HYZAAR [Suspect]
     Indication: HYPERTENSION
     Route: 048
     Dates: start: 20080402, end: 20080410
  2. ROCORNAL [Concomitant]
     Indication: THROMBOSIS PROPHYLAXIS
     Route: 048
     Dates: start: 20021119
  3. MUCOSTA [Concomitant]
     Indication: GASTRIC DISORDER
     Route: 048
     Dates: start: 20021119
  4. OLMETEC [Concomitant]
     Indication: HYPERTENSION
     Route: 048
     Dates: start: 20061205, end: 20080402

REACTIONS (1)
  - SINUS ARRHYTHMIA [None]
